FAERS Safety Report 17132045 (Version 2)
Quarter: 2020Q1

REPORT INFORMATION
  Report Type: Report from Study
  Country: US (occurrence: US)
  Receive Date: 20191210
  Receipt Date: 20200227
  Transmission Date: 20200409
  Serious: No
  Sender: FDA-Public Use
  Company Number: NVSC2019US062620

PATIENT
  Sex: Female

DRUGS (2)
  1. COSENTYX [Suspect]
     Active Substance: SECUKINUMAB
     Indication: PSORIATIC ARTHROPATHY
  2. COSENTYX [Suspect]
     Active Substance: SECUKINUMAB
     Indication: PSORIASIS
     Dosage: 300 MG (ONCE WEEKLY FOR 5 WEEKS (LOADING)
     Route: 058
     Dates: start: 20191114

REACTIONS (4)
  - Nausea [Unknown]
  - Faeces discoloured [Unknown]
  - Headache [Unknown]
  - Abdominal pain upper [Unknown]
